FAERS Safety Report 9517058 (Version 1)
Quarter: 2013Q3

REPORT INFORMATION
  Report Type: Spontaneous
  Country: US (occurrence: US)
  Receive Date: 20130911
  Receipt Date: 20130911
  Transmission Date: 20140515
  Serious: No
  Sender: FDA-Public Use
  Company Number: US-PFIZER INC-2013259039

PATIENT
  Sex: Female

DRUGS (7)
  1. MORPHINE SULFATE [Suspect]
     Dosage: UNK
  2. CODEINE [Suspect]
     Dosage: UNK
  3. STADOL [Suspect]
     Dosage: UNK
  4. BUTAZOLIDIN ALKA [Suspect]
     Dosage: UNK
  5. TOFRANIL [Suspect]
     Dosage: UNK
  6. LIMBITROL [Suspect]
     Dosage: UNK
  7. PSEUDOEPHEDRINE [Suspect]
     Dosage: UNK

REACTIONS (1)
  - Drug hypersensitivity [Unknown]
